FAERS Safety Report 10184015 (Version 2)
Quarter: 2014Q2

REPORT INFORMATION
  Report Type: Spontaneous
  Country: JP (occurrence: JP)
  Receive Date: 20140520
  Receipt Date: 20140616
  Transmission Date: 20141212
  Serious: Yes (Hospitalization)
  Sender: FDA-Public Use
  Company Number: JP-GLAXOSMITHKLINE-B0960644A

PATIENT
  Age: 80 Year
  Sex: Male

DRUGS (19)
  1. VALTREX [Suspect]
     Indication: HERPES ZOSTER
     Dosage: 1000MG TWICE PER DAY
     Route: 048
     Dates: start: 20131228, end: 20140108
  2. CALSLOT [Concomitant]
     Dosage: 20MG PER DAY
     Route: 048
     Dates: start: 20110427
  3. PROTECADIN [Concomitant]
     Dosage: 10MG PER DAY
     Route: 048
     Dates: start: 20110427
  4. MEXITIL [Concomitant]
     Dosage: 100MG TWICE PER DAY
     Route: 048
     Dates: start: 20110427
  5. NITOROL R [Concomitant]
     Dosage: 20MG TWICE PER DAY
     Route: 048
     Dates: start: 20110427
  6. FERROMIA [Concomitant]
     Dosage: 50MG TWICE PER DAY
     Route: 048
     Dates: start: 20110427
  7. CINAL [Concomitant]
     Dosage: 1G TWICE PER DAY
     Route: 048
     Dates: start: 20110427
  8. FUROSEMIDE [Concomitant]
     Dosage: 20MG PER DAY
     Route: 048
     Dates: start: 20110427
  9. FUROSEMIDE [Concomitant]
     Indication: HERPES ZOSTER
     Dosage: 20MG PER DAY
     Route: 048
     Dates: start: 20140112, end: 20140118
  10. RINDERON [Concomitant]
     Indication: HERPES ZOSTER
     Route: 061
     Dates: start: 20140109
  11. CALONAL [Concomitant]
     Indication: HERPES ZOSTER
     Route: 048
     Dates: start: 20140109
  12. PREDONINE [Concomitant]
     Indication: HERPES ZOSTER
     Dosage: 10MG PER DAY
     Route: 048
     Dates: start: 20140109, end: 20140109
  13. PREDONINE [Concomitant]
     Indication: HERPES ZOSTER
     Dosage: 10MG TWICE PER DAY
     Route: 048
     Dates: start: 20140110, end: 20140112
  14. TAKEPRON [Concomitant]
     Indication: HERPES ZOSTER
     Dosage: 15MG PER DAY
     Route: 048
     Dates: start: 20140109, end: 20140109
  15. TAKEPRON [Concomitant]
     Indication: HERPES ZOSTER
     Dosage: 15MG PER DAY
     Route: 048
     Dates: start: 20140110, end: 20140112
  16. HIRUDOID [Concomitant]
     Indication: HERPES ZOSTER
     Route: 061
     Dates: start: 20140111
  17. PROSTANDIN [Concomitant]
     Indication: HERPES ZOSTER
     Route: 061
     Dates: start: 20140116
  18. VICCLOX [Concomitant]
     Indication: HERPES ZOSTER
     Dosage: 250MG TWICE PER DAY
     Route: 042
     Dates: start: 20140109, end: 20140115
  19. SEISHOKU [Concomitant]
     Indication: HERPES ZOSTER
     Dosage: 100ML TWICE PER DAY
     Route: 042
     Dates: start: 20140109, end: 20140115

REACTIONS (2)
  - Crystalluria [Recovering/Resolving]
  - Cardiomegaly [Unknown]
